FAERS Safety Report 22723164 (Version 14)
Quarter: 2025Q3

REPORT INFORMATION
  Report Type: Report from Study
  Country: CA (occurrence: CA)
  Receive Date: 20230719
  Receipt Date: 20250822
  Transmission Date: 20251021
  Serious: Yes (Hospitalization, Other)
  Sender: GLAXOSMITHKLINE
  Company Number: CA-GLAXOSMITHKLINE-CA2023AMR070593

PATIENT
  Sex: Female

DRUGS (30)
  1. MEPOLIZUMAB [Suspect]
     Active Substance: MEPOLIZUMAB
     Indication: Asthma
     Dosage: 100 MG, Q4W
  2. MEPOLIZUMAB [Suspect]
     Active Substance: MEPOLIZUMAB
     Indication: Asthma
     Dosage: 100 MG, Q4W
  3. MEPOLIZUMAB [Suspect]
     Active Substance: MEPOLIZUMAB
     Indication: Asthma
     Dosage: 100 MG, Q4W
  4. MEPOLIZUMAB [Suspect]
     Active Substance: MEPOLIZUMAB
     Indication: Asthma
     Dosage: 100 MG, Q4W
  5. MEPOLIZUMAB [Suspect]
     Active Substance: MEPOLIZUMAB
     Indication: Asthma
     Dosage: 100 MG, Q4W
  6. MEPOLIZUMAB [Suspect]
     Active Substance: MEPOLIZUMAB
     Indication: Asthma
     Dosage: 100 MG, Q4W
  7. MEPOLIZUMAB [Suspect]
     Active Substance: MEPOLIZUMAB
     Indication: Asthma
     Dosage: 100 MG, Q4W
  8. MEPOLIZUMAB [Suspect]
     Active Substance: MEPOLIZUMAB
     Indication: Asthma
     Dosage: 100 MG, Q4W
  9. MEPOLIZUMAB [Suspect]
     Active Substance: MEPOLIZUMAB
     Indication: Asthma
     Dosage: 100 MG, Q4W
  10. MEPOLIZUMAB [Suspect]
     Active Substance: MEPOLIZUMAB
     Indication: Asthma
     Dosage: 100 MG, Q4W
  11. MEPOLIZUMAB [Suspect]
     Active Substance: MEPOLIZUMAB
     Indication: Asthma
     Dosage: 100 MG, Q4W
  12. MEPOLIZUMAB [Suspect]
     Active Substance: MEPOLIZUMAB
     Indication: Asthma
     Dosage: 100 MG, Q4W
  13. MEPOLIZUMAB [Suspect]
     Active Substance: MEPOLIZUMAB
     Indication: Asthma
     Dosage: 100 MG, Q4W
  14. MEPOLIZUMAB [Suspect]
     Active Substance: MEPOLIZUMAB
     Indication: Asthma
     Dosage: 100 MG, Q4W
  15. MEPOLIZUMAB [Suspect]
     Active Substance: MEPOLIZUMAB
     Indication: Asthma
     Dosage: 100 MG, Q4W
  16. NABILONE [Suspect]
     Active Substance: NABILONE
     Indication: Pulmonary pain
  17. OZEMPIC [Concomitant]
     Active Substance: SEMAGLUTIDE
     Indication: Product used for unknown indication
     Dosage: 0.25 MG, WE
  18. CALCIUM [Concomitant]
     Active Substance: CALCIUM
     Indication: Product used for unknown indication
     Dosage: UNK, BID
  19. CALCIUM [Concomitant]
     Active Substance: CALCIUM
     Dosage: UNK, QD
  20. VENTOLIN [Concomitant]
     Active Substance: ALBUTEROL SULFATE
     Indication: Product used for unknown indication
     Dosage: 2 PUFF(S), 6D, Q 4 HS
  21. VENTOLIN [Concomitant]
     Active Substance: ALBUTEROL SULFATE
  22. ALVESCO [Concomitant]
     Active Substance: CICLESONIDE
     Indication: Product used for unknown indication
     Dosage: 4 PUFF(S), BID (Q 4 HS)
  23. GLYCOPYRRONIUM\INDACATEROL [Concomitant]
     Active Substance: GLYCOPYRRONIUM\INDACATEROL
     Indication: Product used for unknown indication
     Dosage: 1 PUFF(S), QD
  24. UNIPHYL [Concomitant]
     Active Substance: THEOPHYLLINE ANHYDROUS
     Indication: Product used for unknown indication
     Dosage: 400 MG, QD
  25. MONTELUKAST [Concomitant]
     Active Substance: MONTELUKAST
     Indication: Product used for unknown indication
     Dosage: 10 MG, QD
  26. SINGULAIR [Concomitant]
     Active Substance: MONTELUKAST SODIUM
     Indication: Product used for unknown indication
  27. SINGULAIR [Concomitant]
     Active Substance: MONTELUKAST SODIUM
     Dosage: 30 MG, QD
  28. PREDNISONE [Concomitant]
     Active Substance: PREDNISONE
     Indication: Asthma
     Dosage: 30 MG, QD
  29. PREDNISONE [Concomitant]
     Active Substance: PREDNISONE
     Dosage: 20 MG, QD (CAN INCREASE TO 40MG DURING EXACERBATION PRN.)
  30. PREDNISONE [Concomitant]
     Active Substance: PREDNISONE
     Dosage: UNK UNK, QD,(20MG - 40MG)

REACTIONS (45)
  - Myocardial infarction [Unknown]
  - Delirium [Unknown]
  - Hyperglycaemia [Unknown]
  - Electrolyte imbalance [Unknown]
  - Hospitalisation [Recovered/Resolved]
  - Hallucination [Unknown]
  - Pulmonary valve stenosis [Unknown]
  - Nephrolithiasis [Unknown]
  - Hypokalaemia [Unknown]
  - Chronic obstructive pulmonary disease [Unknown]
  - Asthma [Unknown]
  - Tachycardia [Not Recovered/Not Resolved]
  - Oxygen saturation decreased [Unknown]
  - Nail discolouration [Unknown]
  - Blood pressure decreased [Unknown]
  - Insomnia [Unknown]
  - Balance disorder [Unknown]
  - Haemoglobin decreased [Unknown]
  - Weight decreased [Recovering/Resolving]
  - Diarrhoea [Recovered/Resolved]
  - Decreased appetite [Unknown]
  - Skeletal injury [Not Recovered/Not Resolved]
  - Erythema [Unknown]
  - Pain [Unknown]
  - Tenderness [Unknown]
  - Abdominal pain [Unknown]
  - Crying [Unknown]
  - Nasal discharge discolouration [Unknown]
  - Sputum retention [Recovered/Resolved]
  - Bloody discharge [Unknown]
  - Loss of personal independence in daily activities [Unknown]
  - Movement disorder [Unknown]
  - Dehydration [Unknown]
  - Eating disorder [Unknown]
  - Malaise [Unknown]
  - Respiratory disorder [Recovering/Resolving]
  - Heart rate decreased [Unknown]
  - Limb injury [Recovering/Resolving]
  - Respiratory rate increased [Unknown]
  - Dyspnoea exertional [Unknown]
  - Rales [Unknown]
  - Asthenia [Unknown]
  - Dyspnoea [Not Recovered/Not Resolved]
  - Wheezing [Unknown]
  - Disturbance in attention [Not Recovered/Not Resolved]

NARRATIVE: CASE EVENT DATE: 20230101
